FAERS Safety Report 6208586-1 (Version None)
Quarter: 2009Q2

REPORT INFORMATION
  Report Type: 
  Country: None (occurrence: None)
  Receive Date: 20090529
  Receipt Date: 20090513
  Transmission Date: 20091009
  Serious: Yes (Other)
  Sender: FDA-Public Use
  Company Number: US-PURDUE-USA-2009-0038194

PATIENT
  Sex: Male

DRUGS (1)
  1. OXYCONTIN [Suspect]
     Indication: BACK PAIN
     Dosage: UNK
     Dates: start: 20020101, end: 20050501

REACTIONS (5)
  - ANXIETY [None]
  - CONVULSION [None]
  - DISABILITY [None]
  - EMOTIONAL DISTRESS [None]
  - PAIN [None]
